FAERS Safety Report 7162107-8 (Version None)
Quarter: 2010Q4

REPORT INFORMATION
  Report Type: 
  Country: None (occurrence: None)
  Receive Date: 20101215
  Receipt Date: 20090813
  Transmission Date: 20110411
  Serious: Yes (Hospitalization, Other)
  Sender: FDA-Public Use
  Company Number: CA-PFIZER INC-2009233649

PATIENT
  Age: 63 Year

DRUGS (3)
  1. LYRICA [Suspect]
     Indication: HERPES ZOSTER
     Dosage: UNK
     Dates: start: 20071001
  2. VALTREX [Interacting]
     Indication: HERPES ZOSTER
     Dosage: UNK
     Dates: start: 20071001
  3. TEGRETOL - SLOW RELEASE [Concomitant]
     Indication: EPILEPSY
     Dosage: 200 MG, UNK
     Dates: start: 19880101

REACTIONS (2)
  - DRUG INTERACTION [None]
  - GRAND MAL CONVULSION [None]
